FAERS Safety Report 8176007-8 (Version None)
Quarter: 2012Q1

REPORT INFORMATION
  Report Type: 
  Country: None (occurrence: None)
  Receive Date: 20120301
  Receipt Date: 20120223
  Transmission Date: 20120608
  Serious: No
  Sender: FDA-Public Use
  Company Number: US-PFIZER INC-2012049499

PATIENT

DRUGS (1)
  1. NEOSPORIN [Suspect]
     Dosage: UNK
     Route: 061

REACTIONS (1)
  - SKIN IRRITATION [None]
